FAERS Safety Report 6387658-5 (Version None)
Quarter: 2009Q4

REPORT INFORMATION
  Report Type: 
  Country: None (occurrence: None)
  Receive Date: 20091005
  Receipt Date: 20090921
  Transmission Date: 20100525
  Serious: Yes (Hospitalization)
  Sender: FDA-Public Use
  Company Number: PHHY2009GB37992

PATIENT
  Sex: Female

DRUGS (7)
  1. CLOZARIL [Suspect]
     Indication: SCHIZOPHRENIA
     Dosage: 300 MG
     Route: 048
     Dates: start: 20001201
  2. CLOZARIL [Suspect]
     Dosage: UNK
     Route: 048
     Dates: start: 20081124
  3. CLOMIPRAMINE [Concomitant]
     Indication: DEPRESSIVE SYMPTOM
     Dosage: 100  MG
     Route: 048
  4. LITHIUM CARBONATE [Concomitant]
     Indication: MOOD SWINGS
     Dosage: 1000 MG
     Route: 048
  5. LEVOTHYROXINE SODIUM [Concomitant]
     Dosage: 175 MCG
     Route: 048
  6. FLUTICASONE [Concomitant]
     Indication: ASTHMA
  7. SALMETEROL [Concomitant]
     Indication: ASTHMA

REACTIONS (3)
  - ASTHMA [None]
  - BLOOD COUNT ABNORMAL [None]
  - LOWER RESPIRATORY TRACT INFECTION [None]
